FAERS Safety Report 10299495 (Version 5)
Quarter: 2018Q4

REPORT INFORMATION
  Report Type: Spontaneous
  Country: GB (occurrence: GB)
  Receive Date: 20140711
  Receipt Date: 20181220
  Transmission Date: 20190204
  Serious: Yes (Disabling, Other)
  Sender: FDA-Public Use
  Company Number: GB-TEVA-441873USA

PATIENT
  Age: 40 Year
  Sex: Female

DRUGS (1)
  1. LEVONELLE [Suspect]
     Active Substance: LEVONORGESTREL
     Indication: POST COITAL CONTRACEPTION
     Route: 048
     Dates: start: 20130907, end: 20130907

REACTIONS (4)
  - Maternal exposure before pregnancy [Unknown]
  - Post abortion complication [Unknown]
  - Drug ineffective [Unknown]
  - Abortion induced [Recovered/Resolved]
